FAERS Safety Report 5158585-6 (Version None)
Quarter: 2006Q4

REPORT INFORMATION
  Report Type: 
  Country: None (occurrence: None)
  Receive Date: 20061128
  Receipt Date: 20061120
  Transmission Date: 20070319
  Serious: Yes (Disabling)
  Sender: FDA-Public Use
  Company Number: IT-ELI_LILLY_AND_COMPANY-IT200611004294

PATIENT
  Age: 70 Year
  Sex: Female

DRUGS (1)
  1. OPTRUMA [Suspect]
     Dosage: 1 D/F, DAILY (1/D)
     Route: 048
     Dates: start: 20050601, end: 20060401

REACTIONS (4)
  - DETACHMENT OF RETINAL PIGMENT EPITHELIUM [None]
  - OPTIC ATROPHY [None]
  - RETINAL DEGENERATION [None]
  - RETINAL DISORDER [None]
